FAERS Safety Report 5918412-3 (Version None)
Quarter: 2008Q4

REPORT INFORMATION
  Report Type: 
  Country: None (occurrence: None)
  Receive Date: 20081014
  Receipt Date: 20081014
  Transmission Date: 20090506
  Serious: No
  Sender: FDA-Public Use
  Company Number: None

PATIENT
  Sex: Female
  Weight: 11.1131 kg

DRUGS (2)
  1. CHILDREN'S TYLENOL 160MG PER 5ML MCNEIL PHARMACEUTICALS [Suspect]
     Indication: PYREXIA
     Dosage: 1 TSP 5 TIMES PER DAY PO
     Route: 048
     Dates: start: 20080904, end: 20080910
  2. CHILDREN'S ZYRTEC 1MG/ML MCNEIL PHARMACEUTICALS [Suspect]
     Indication: COUGH
     Dosage: 1 TSP ONCE A DAY PO
     Route: 048
     Dates: start: 20081007, end: 20081012

REACTIONS (4)
  - LIVER INJURY [None]
  - MEDICATION ERROR [None]
  - OVERDOSE [None]
  - PRODUCT QUALITY ISSUE [None]
